FAERS Safety Report 22776301 (Version 6)
Quarter: 2023Q4

REPORT INFORMATION
  Report Type: Report from Study
  Country: GB (occurrence: GB)
  Receive Date: 20230802
  Receipt Date: 20231213
  Transmission Date: 20240110
  Serious: Yes (Other)
  Sender: FDA-Public Use
  Company Number: GB-002147023-NVSC2023GB160119

PATIENT
  Age: 71 Year
  Sex: Female

DRUGS (1)
  1. KISQALI [Suspect]
     Active Substance: RIBOCICLIB
     Indication: Product used for unknown indication
     Dosage: UNK
     Route: 065

REACTIONS (17)
  - Hallucination [Unknown]
  - Monoplegia [Unknown]
  - Thrombosis [Unknown]
  - Pustule [Not Recovered/Not Resolved]
  - Wound [Not Recovered/Not Resolved]
  - Drug hypersensitivity [Unknown]
  - Blister [Unknown]
  - Dyspnoea [Unknown]
  - Constipation [Unknown]
  - Rash pruritic [Unknown]
  - Malaise [Unknown]
  - Lymphoedema [Unknown]
  - Pain in extremity [Unknown]
  - Dizziness [Unknown]
  - Pruritus [Unknown]
  - Contusion [Unknown]
  - Swelling [Unknown]

NARRATIVE: CASE EVENT DATE: 20220201
